FAERS Safety Report 10276681 (Version 2)
Quarter: 2014Q3

REPORT INFORMATION
  Report Type: Spontaneous
  Country: FR (occurrence: FR)
  Receive Date: 20140703
  Receipt Date: 20140812
  Transmission Date: 20150326
  Serious: Yes (Hospitalization)
  Sender: FDA-Public Use
  Company Number: FR-ASTRAZENECA-2014SE46542

PATIENT
  Age: 30068 Day
  Sex: Male

DRUGS (4)
  1. PREVISCAN [Suspect]
     Active Substance: FLUINDIONE
     Indication: MYOCARDIAL INFARCTION
     Route: 048
     Dates: end: 20140326
  2. CRESTOR [Suspect]
     Active Substance: ROSUVASTATIN CALCIUM
     Indication: DYSLIPIDAEMIA
     Route: 048
  3. ACE INHIBITOR [Concomitant]
     Active Substance: UNSPECIFIED INGREDIENT
  4. LASILIX [Concomitant]
     Active Substance: FUROSEMIDE

REACTIONS (4)
  - Epistaxis [Recovered/Resolved]
  - Dyspnoea [Unknown]
  - International normalised ratio increased [Recovered/Resolved]
  - Anaemia [Recovered/Resolved]

NARRATIVE: CASE EVENT DATE: 20140325
